FAERS Safety Report 15977261 (Version 2)
Quarter: 2019Q1

REPORT INFORMATION
  Report Type: Spontaneous
  Country: US (occurrence: US)
  Receive Date: 20190218
  Receipt Date: 20190321
  Transmission Date: 20190418
  Serious: Yes (Other)
  Sender: FDA-Public Use
  Company Number: US-ASTRAZENECA-2019SE25213

PATIENT
  Age: 22120 Day
  Sex: Male
  Weight: 89.8 kg

DRUGS (11)
  1. CARVEDILOL. [Concomitant]
     Active Substance: CARVEDILOL
     Indication: CARDIAC DISORDER
     Route: 048
  2. NITRO [Concomitant]
     Active Substance: NITROGLYCERIN
     Indication: MYOCARDIAL INFARCTION
     Dosage: AS REQUIRED
  3. PREVACID [Concomitant]
     Active Substance: LANSOPRAZOLE
  4. RAMIPRIL. [Concomitant]
     Active Substance: RAMIPRIL
     Route: 048
  5. OMEPRAZOLE. [Suspect]
     Active Substance: OMEPRAZOLE
     Indication: ABDOMINAL DISCOMFORT
     Route: 048
  6. WALGREEN ASPIRIN [Concomitant]
     Indication: CARDIAC DISORDER
     Route: 048
  7. GLIPIZIDE. [Concomitant]
     Active Substance: GLIPIZIDE
     Indication: DIABETES MELLITUS
     Route: 048
  8. BYDUREON [Suspect]
     Active Substance: EXENATIDE
     Indication: TYPE 2 DIABETES MELLITUS
     Route: 058
  9. ATORVASTATIN [Concomitant]
     Active Substance: ATORVASTATIN
     Route: 048
  10. NEXIUM [Suspect]
     Active Substance: ESOMEPRAZOLE MAGNESIUM
     Route: 048
  11. CALCIUM [Concomitant]
     Active Substance: CALCIUM
     Dosage: DAILY

REACTIONS (11)
  - Nasopharyngitis [Unknown]
  - Injection site pain [Unknown]
  - Myocardial infarction [Unknown]
  - Injection site mass [Unknown]
  - Type 2 diabetes mellitus [Unknown]
  - Thrombosis [Unknown]
  - Confusional state [Unknown]
  - Wrong technique in product usage process [Unknown]
  - Visual impairment [Unknown]
  - Device leakage [Unknown]
  - Embolism [Unknown]

NARRATIVE: CASE EVENT DATE: 20190207
